FAERS Safety Report 22173945 (Version 1)
Quarter: 2023Q2

REPORT INFORMATION
  Report Type: Spontaneous
  Country: DE (occurrence: None)
  Receive Date: 20230404
  Receipt Date: 20230404
  Transmission Date: 20230721
  Serious: Yes (Hospitalization)
  Sender: FDA-Public Use
  Company Number: 2023A075772

PATIENT
  Age: 68 Year
  Sex: Male

DRUGS (8)
  1. OLAPARIB [Suspect]
     Active Substance: OLAPARIB
     Indication: Pancreatic carcinoma
     Dosage: 2 X 300 MG TGL.
  2. OXYCODONE HYDROCHLORIDE [Concomitant]
     Active Substance: OXYCODONE HYDROCHLORIDE
  3. PANTOPRAZOLE SODIUM [Concomitant]
     Active Substance: PANTOPRAZOLE SODIUM
  4. TAMSULOSIN [Concomitant]
     Active Substance: TAMSULOSIN
  5. BUPROPION HYDROCHLORIDE [Concomitant]
     Active Substance: BUPROPION HYDROCHLORIDE
  6. ASPIRIN [Concomitant]
     Active Substance: ASPIRIN
  7. GABAPENTIN [Concomitant]
     Active Substance: GABAPENTIN
  8. DAPAGLIFLOZIN [Concomitant]
     Active Substance: DAPAGLIFLOZIN

REACTIONS (3)
  - Cholestasis [Recovered/Resolved]
  - Blood bilirubin increased [Recovered/Resolved]
  - Transaminases increased [Recovered/Resolved]

NARRATIVE: CASE EVENT DATE: 20230117
